FAERS Safety Report 4572107-X (Version None)
Quarter: 2005Q1

REPORT INFORMATION
  Report Type: 
  Country: None (occurrence: None)
  Receive Date: 20050202
  Receipt Date: 20041217
  Transmission Date: 20050727
  Serious: Yes (Hospitalization, Other)
  Sender: FDA-Public Use
  Company Number: USA040874247

PATIENT
  Age: 81 Year
  Sex: Female
  Weight: 73 kg

DRUGS (11)
  1. FORTEO [Suspect]
     Indication: OSTEOPOROSIS
     Dates: start: 20040201
  2. LORTAB [Concomitant]
  3. HYDROCHLOROTHIAZIDE [Concomitant]
  4. PREDNISONE [Concomitant]
  5. AMBIEN [Concomitant]
  6. IBUPROFEN [Concomitant]
  7. NEXIUM [Concomitant]
  8. BENICAR [Concomitant]
  9. LASIX [Concomitant]
  10. ZOLOFT [Concomitant]
  11. XANAX (ALPRAZOLAM DUM) [Concomitant]

REACTIONS (61)
  - ANAEMIA [None]
  - ANXIETY [None]
  - AORTIC VALVE INCOMPETENCE [None]
  - ARTHRALGIA [None]
  - ASTHENIA [None]
  - BACK PAIN [None]
  - BLOOD ALKALINE PHOSPHATASE INCREASED [None]
  - BLOOD CREATINE PHOSPHOKINASE INCREASED [None]
  - BLOOD GLUCOSE INCREASED [None]
  - CANDIDIASIS [None]
  - CELLULITIS [None]
  - CONDITION AGGRAVATED [None]
  - CONFUSIONAL STATE [None]
  - CONTUSION [None]
  - CYSTITIS [None]
  - DEEP VEIN THROMBOSIS [None]
  - DEPRESSION [None]
  - DIABETES MELLITUS [None]
  - DIARRHOEA [None]
  - DIASTOLIC DYSFUNCTION [None]
  - DILATATION ATRIAL [None]
  - DIZZINESS [None]
  - DYSPHORIA [None]
  - ESCHERICHIA URINARY TRACT INFECTION [None]
  - EXCORIATION [None]
  - FAECAL OCCULT BLOOD POSITIVE [None]
  - FALL [None]
  - FATIGUE [None]
  - GASTRITIS [None]
  - HAEMATOMA [None]
  - HAEMORRHAGE [None]
  - HEADACHE [None]
  - HYPOKALAEMIA [None]
  - INADEQUATE ANALGESIA [None]
  - INJECTION SITE ERYTHEMA [None]
  - INJECTION SITE HAEMORRHAGE [None]
  - INJECTION SITE SWELLING [None]
  - INJECTION SITE WARMTH [None]
  - INSOMNIA [None]
  - INTERNATIONAL NORMALISED RATIO INCREASED [None]
  - LACERATION [None]
  - MUSCLE SPASMS [None]
  - MYDRIASIS [None]
  - NAUSEA [None]
  - OEDEMA PERIPHERAL [None]
  - OESOPHAGEAL DISORDER [None]
  - OPEN WOUND [None]
  - PAIN [None]
  - PAIN IN EXTREMITY [None]
  - PATHOGEN RESISTANCE [None]
  - PERICARDIAL EFFUSION [None]
  - PITTING OEDEMA [None]
  - PURPURA [None]
  - RENAL FAILURE [None]
  - SKIN FRAGILITY [None]
  - SKIN ULCER [None]
  - SWELLING [None]
  - TREATMENT NONCOMPLIANCE [None]
  - URINARY TRACT INFECTION [None]
  - VENTRICULAR EXTRASYSTOLES [None]
  - VENTRICULAR TACHYCARDIA [None]
